FAERS Safety Report 25201426 (Version 1)
Quarter: 2025Q2

REPORT INFORMATION
  Report Type: Spontaneous
  Country: US (occurrence: US)
  Receive Date: 20250416
  Receipt Date: 20250416
  Transmission Date: 20250716
  Serious: Yes (Other)
  Sender: COOPERSURGICAL
  Company Number: US-COOPERSURGICAL, INC.-2025CPS002761

PATIENT
  Age: 50 Year
  Sex: Female
  Weight: 56.689 kg

DRUGS (4)
  1. PARAGARD T 380A [Suspect]
     Active Substance: COPPER
     Indication: Contraception
     Route: 015
     Dates: start: 20120614, end: 20210203
  2. PROGESTERONE [Concomitant]
     Active Substance: PROGESTERONE
     Dates: start: 201807, end: 202110
  3. ESTROGEN NOS [Concomitant]
     Active Substance: ESTROGENS
     Dates: start: 201807, end: 202110
  4. TESTOSTERONE [Concomitant]
     Active Substance: TESTOSTERONE
     Dates: start: 201601, end: 202110

REACTIONS (5)
  - Uterine injury [Unknown]
  - Device breakage [Recovered/Resolved]
  - Foreign body in reproductive tract [Recovered/Resolved]
  - Complication of device removal [Recovered/Resolved]
  - Procedural haemorrhage [Recovered/Resolved]

NARRATIVE: CASE EVENT DATE: 20210125
